FAERS Safety Report 9849026 (Version 1)
Quarter: 2014Q1

REPORT INFORMATION
  Report Type: Spontaneous
  Country: US (occurrence: None)
  Receive Date: 20140127
  Receipt Date: 20140127
  Transmission Date: 20141002
  Serious: Yes (Other)
  Sender: FDA-Public Use
  Company Number: None

PATIENT
  Age: 46 Year
  Sex: Female
  Weight: 70.76 kg

DRUGS (2)
  1. MONTELUKAST SODIUM [Suspect]
     Indication: ASTHMA
     Dosage: TAKEN BY MOUTH
     Dates: start: 20131211, end: 20140126
  2. MONTELUKAST SODIUM [Suspect]
     Indication: RHINITIS ALLERGIC
     Dosage: TAKEN BY MOUTH
     Dates: start: 20131211, end: 20140126

REACTIONS (2)
  - Suicidal ideation [None]
  - Mood altered [None]
